FAERS Safety Report 7236407-7 (Version None)
Quarter: 2011Q1

REPORT INFORMATION
  Report Type: 
  Country: None (occurrence: None)
  Receive Date: 20110120
  Receipt Date: 20110117
  Transmission Date: 20110831
  Serious: Yes (Other)
  Sender: FDA-Public Use
  Company Number: BR-PFIZER INC-2010154195

PATIENT
  Age: 62 Year
  Sex: Female
  Weight: 75 kg

DRUGS (6)
  1. LAMOTRIGINE [Concomitant]
     Indication: DEPRESSION
     Dosage: 25 MG, 1X/DAY
  2. BUFFERIN [Concomitant]
     Indication: ARTERIAL OCCLUSIVE DISEASE
     Dosage: 81 UG, 1X/DAY
     Dates: start: 20080101
  3. CHAMPIX [Suspect]
     Indication: TOBACCO USER
     Dosage: UNK
     Route: 048
     Dates: start: 20101018
  4. CAPTOPRIL [Concomitant]
     Indication: HYPERTENSION
     Dosage: 25 MG, 1X/DAY
  5. PANTOPRAZOLE [Concomitant]
     Indication: HIATUS HERNIA
     Dosage: 20 MG, 1X/DAY
  6. PURAN T4 [Concomitant]
     Indication: HYPOTHYROIDISM
     Dosage: 100 UG, 1X/DAY

REACTIONS (3)
  - HIATUS HERNIA [None]
  - LOCALISED INFECTION [None]
  - PSORIASIS [None]
